FAERS Safety Report 8614718-8 (Version None)
Quarter: 2012Q3

REPORT INFORMATION
  Report Type: 
  Country: None (occurrence: None)
  Receive Date: 20120823
  Receipt Date: 20120820
  Transmission Date: 20120928
  Serious: Yes (Other)
  Sender: FDA-Public Use
  Company Number: US-AMGEN-USASP2012040290

PATIENT
  Age: 62 Year
  Sex: Male
  Weight: 91.1 kg

DRUGS (3)
  1. NPLATE [Suspect]
     Indication: AUTOIMMUNE THROMBOCYTOPENIA
     Dosage: 10 MUG, QWK
     Route: 058
     Dates: start: 20111128, end: 20120719
  2. NPLATE [Suspect]
     Dosage: 9 MUG/KG, UNK
  3. LOSARTAN POTASSIUM [Concomitant]
     Dosage: UNK

REACTIONS (3)
  - TREATMENT FAILURE [None]
  - THERAPEUTIC RESPONSE DECREASED [None]
  - ARTHRALGIA [None]
